FAERS Safety Report 22643088 (Version 2)
Quarter: 2023Q2

REPORT INFORMATION
  Report Type: Spontaneous
  Country: CA (occurrence: CA)
  Receive Date: 20230627
  Receipt Date: 20230628
  Transmission Date: 20230722
  Serious: Yes (Hospitalization, Other)
  Sender: FDA-Public Use
  Company Number: CA-JNJFOC-20230646065

PATIENT
  Age: 79 Year
  Sex: Male

DRUGS (1)
  1. INVOKANA [Suspect]
     Active Substance: CANAGLIFLOZIN
     Indication: Proteinuria
     Route: 048

REACTIONS (5)
  - Hospitalisation [Unknown]
  - Cardiac pacemaker insertion [Unknown]
  - Weight decreased [Unknown]
  - Pollakiuria [Unknown]
  - Off label use [Unknown]
